FAERS Safety Report 14499023 (Version 1)
Quarter: 2018Q1

REPORT INFORMATION
  Report Type: Spontaneous
  Country: CA (occurrence: CA)
  Receive Date: 20180207
  Receipt Date: 20180207
  Transmission Date: 20180509
  Serious: Yes (Other)
  Sender: FDA-Public Use
  Company Number: CA-PFIZER INC-2018054449

PATIENT
  Age: 32 Year
  Sex: Female

DRUGS (4)
  1. DESVENLAFAXINE. [Suspect]
     Active Substance: DESVENLAFAXINE
     Dosage: 100 MG, UNK
  2. CYPROHEPTADINE. [Suspect]
     Active Substance: CYPROHEPTADINE
     Dosage: 4 MG, 1X/DAY
  3. TRAZODONE [Suspect]
     Active Substance: TRAZODONE HYDROCHLORIDE
     Dosage: 100 MG, UNK
  4. LAMOTRIGINE. [Suspect]
     Active Substance: LAMOTRIGINE
     Dosage: 50 MG, UNK

REACTIONS (2)
  - Mood altered [Recovered/Resolved]
  - Obsessive-compulsive disorder [Recovered/Resolved]
